FAERS Safety Report 13762662 (Version 1)
Quarter: 2017Q3

REPORT INFORMATION
  Report Type: Spontaneous
  Country: US (occurrence: US)
  Receive Date: 20170718
  Receipt Date: 20170718
  Transmission Date: 20171127
  Serious: No
  Sender: FDA-Public Use
  Company Number: None

PATIENT
  Age: 20 Year
  Sex: Female
  Weight: 57.6 kg

DRUGS (1)
  1. NEXPLANON [Suspect]
     Active Substance: ETONOGESTREL
     Indication: CONTRACEPTION
     Dosage: ?          OTHER STRENGTH:MG;QUANTITY:1 IMPLANT;OTHER ROUTE:IMPLANTED UNDER SKIN OF INNER LEFT BICEP?
     Dates: start: 20160118, end: 20160510

REACTIONS (3)
  - Alopecia [None]
  - Muscle tone disorder [None]
  - Acne [None]

NARRATIVE: CASE EVENT DATE: 20160413
